FAERS Safety Report 13614162 (Version 1)
Quarter: 2017Q2

REPORT INFORMATION
  Report Type: Spontaneous
  Country: IN (occurrence: IN)
  Receive Date: 20170606
  Receipt Date: 20170606
  Transmission Date: 20170830
  Serious: Yes (Other)
  Sender: FDA-Public Use
  Company Number: PHHY2017IN078058

PATIENT
  Age: 58 Year
  Sex: Male

DRUGS (1)
  1. IMATINIB [Suspect]
     Active Substance: IMATINIB
     Indication: OESOPHAGEAL CANCER METASTATIC
     Dosage: 400 MG, QD
     Route: 065

REACTIONS (4)
  - Papillary thyroid cancer [Recovering/Resolving]
  - Second primary malignancy [Recovering/Resolving]
  - Malignant neoplasm progression [Recovering/Resolving]
  - Metastases to lymph nodes [Recovering/Resolving]
